FAERS Safety Report 9976996 (Version 1)
Quarter: 2014Q1

REPORT INFORMATION
  Report Type: Report from Study
  Country: US (occurrence: US)
  Receive Date: 20140306
  Receipt Date: 20140306
  Transmission Date: 20141002
  Serious: No
  Sender: FDA-Public Use
  Company Number: US-ABBVIE-13P-163-1168251-00

PATIENT
  Age: 41 Year
  Sex: Female
  Weight: 47.67 kg

DRUGS (11)
  1. HUMIRA [Suspect]
     Indication: CROHN^S DISEASE
     Dates: start: 201208, end: 201302
  2. FENTANYL [Concomitant]
     Indication: PAIN
  3. VALIUM [Concomitant]
     Indication: ANXIETY
  4. DILAUDID [Concomitant]
     Indication: PAIN
  5. BENTYL [Concomitant]
     Indication: ABDOMINAL PAIN
  6. NEXIUM [Concomitant]
     Indication: GASTROOESOPHAGEAL REFLUX DISEASE
  7. SYNTHROID [Concomitant]
     Indication: HYPOTHYROIDISM
  8. TIZANIDINE [Concomitant]
     Indication: MUSCLE SPASMS
  9. TRAZODONE [Concomitant]
     Indication: PAIN
  10. ZOFRAN [Concomitant]
     Indication: NAUSEA
  11. MAXALT [Concomitant]
     Indication: MIGRAINE

REACTIONS (2)
  - Amnesia [Recovered/Resolved]
  - Diarrhoea [Not Recovered/Not Resolved]
